FAERS Safety Report 16388778 (Version 1)
Quarter: 2019Q2

REPORT INFORMATION
  Report Type: Spontaneous
  Country: FR (occurrence: FR)
  Receive Date: 20190604
  Receipt Date: 20190604
  Transmission Date: 20190711
  Serious: Yes (Hospitalization)
  Sender: FDA-Public Use
  Company Number: FR-PFIZER INC-2019235312

PATIENT
  Age: 69 Year
  Sex: Female
  Weight: 101 kg

DRUGS (11)
  1. LANSOPRAZOLE ARROW [Suspect]
     Active Substance: LANSOPRAZOLE
     Indication: PROPHYLAXIS AGAINST GASTROINTESTINAL ULCER
     Dosage: 15 MG, 1X/DAY, (0-0-1)
     Route: 048
     Dates: start: 20190422, end: 20190503
  2. PREGABALIN. [Suspect]
     Active Substance: PREGABALIN
     Indication: NEURALGIA
     Dosage: 50 MG, DAILY (1-0-1)
     Route: 048
     Dates: start: 20190423, end: 20190503
  3. OXYCONTIN [Concomitant]
     Active Substance: OXYCODONE HYDROCHLORIDE
     Indication: ANALGESIC INTERVENTION SUPPORTIVE THERAPY
     Dosage: 10 MG, 1X/DA, (1-0-1)
     Route: 048
     Dates: start: 20190410
  4. OXYCONTIN [Concomitant]
     Active Substance: OXYCODONE HYDROCHLORIDE
     Indication: ANALGESIC INTERVENTION SUPPORTIVE THERAPY
     Dosage: 20 MG, 1X/DAY, (1-0-1)
     Route: 048
     Dates: start: 20190410
  5. MOVICOL [Concomitant]
     Active Substance: POLYETHYLENE GLYCOL 3350\POTASSIUM CHLORIDE\SODIUM BICARBONATE\SODIUM CHLORIDE
     Indication: CONSTIPATION
     Dosage: 2-0-0
     Route: 048
  6. OXYNORMORO [Concomitant]
     Active Substance: OXYCODONE HYDROCHLORIDE
     Indication: ANALGESIC INTERVENTION SUPPORTIVE THERAPY
     Dosage: UNK, AS NEEDED
     Route: 048
     Dates: start: 20190410
  7. LETROZOLE MYLAN [Suspect]
     Active Substance: LETROZOLE
     Indication: BREAST CANCER
     Dosage: 2.5 MG, 1X/DAY
     Route: 048
     Dates: start: 20190424, end: 20190506
  8. PRIMPERAN [Concomitant]
     Active Substance: METOCLOPRAMIDE HYDROCHLORIDE
     Indication: ANTIEMETIC SUPPORTIVE CARE
     Dosage: 10 MG, AS NEEDED, (MAX3/DAY)
     Route: 048
     Dates: start: 20190410
  9. DOLIPRANE [Concomitant]
     Active Substance: ACETAMINOPHEN
     Indication: ANALGESIC INTERVENTION SUPPORTIVE THERAPY
     Dosage: 2-2-2-2
     Route: 048
  10. LOVENOX [Concomitant]
     Active Substance: ENOXAPARIN SODIUM
     Indication: EMBOLIC STROKE
     Dosage: 4000 IU, 1X/DAY, (0-0-1)
     Route: 058
     Dates: start: 20190410
  11. PREDNISON [Concomitant]
     Active Substance: PREDNISONE
     Indication: SPINAL CORD INFECTION
     Dosage: 120 MG, 1X/DAY, (4-2-0)
     Route: 048
     Dates: start: 20190413

REACTIONS (2)
  - Thrombocytopenia [Recovered/Resolved]
  - Agranulocytosis [Recovered/Resolved]

NARRATIVE: CASE EVENT DATE: 20190503
